FAERS Safety Report 10015384 (Version 1)
Quarter: 2014Q1

REPORT INFORMATION
  Report Type: Spontaneous
  Country: US (occurrence: US)
  Receive Date: 20140317
  Receipt Date: 20140317
  Transmission Date: 20141002
  Serious: No
  Sender: FDA-Public Use
  Company Number: US-009507513-1403USA006374

PATIENT
  Sex: Female

DRUGS (7)
  1. PEGINTRON [Suspect]
     Indication: HEPATITIS C
     Dosage: REDIPEN,0.5 ML, Q 7 DAYS
     Dates: start: 20140224
  2. PEGINTRON [Suspect]
     Dosage: REDIPEN, UNK, Q 7 DAYS
     Dates: start: 20090101, end: 20091101
  3. REBETOL [Suspect]
     Indication: HEPATITIS C
     Dosage: UNK, TWICE A DAY
     Route: 048
     Dates: start: 20140224
  4. REBETOL [Suspect]
     Dosage: UNK, TWICE A DAY
     Route: 048
     Dates: start: 20090101, end: 20091101
  5. NEXIUM [Concomitant]
     Dosage: UNK
  6. SOVALDI [Concomitant]
     Dosage: UNK
  7. ICY HOT CREAM [Concomitant]
     Dosage: UNK

REACTIONS (18)
  - Hepatic pain [Unknown]
  - Hypersomnia [Unknown]
  - Panic reaction [Unknown]
  - Panic attack [Unknown]
  - Somnolence [Unknown]
  - Hyperhidrosis [Unknown]
  - Chest pain [Unknown]
  - Dyspepsia [Unknown]
  - Diarrhoea [Unknown]
  - Nausea [Unknown]
  - Insomnia [Unknown]
  - Dyspnoea [Unknown]
  - Decreased appetite [Unknown]
  - Weight decreased [Unknown]
  - Arthralgia [Unknown]
  - Pain in extremity [Unknown]
  - Drug ineffective [Unknown]
  - Pain [Unknown]
